FAERS Safety Report 8056143-7 (Version None)
Quarter: 2011Q4

REPORT INFORMATION
  Report Type: 
  Country: None (occurrence: None)
  Receive Date: 20111216
  Receipt Date: 20111013
  Transmission Date: 20120403
  Serious: Yes (Other)
  Sender: FDA-Public Use
  Company Number: 304959USA

PATIENT
  Sex: Female

DRUGS (1)
  1. PARAGARD T 380A [Suspect]
     Indication: CONTRACEPTION
     Dosage: IU

REACTIONS (2)
  - DRUG INEFFECTIVE [None]
  - ECTOPIC PREGNANCY WITH INTRAUTERINE DEVICE [None]
